FAERS Safety Report 8346861-5 (Version None)
Quarter: 2012Q2

REPORT INFORMATION
  Report Type: 
  Country: None (occurrence: None)
  Receive Date: 20120509
  Receipt Date: 20120502
  Transmission Date: 20120825
  Serious: No
  Sender: FDA-Public Use
  Company Number: US-B.I. PHARMACEUTICALS,INC./RIDGEFIELD-2012-BP-10027BP

PATIENT
  Age: 88 Year
  Sex: Female

DRUGS (5)
  1. SIMVASTATIN [Concomitant]
  2. COREG [Concomitant]
  3. PRADAXA [Suspect]
     Dosage: 150 MG
     Route: 048
     Dates: start: 20110101
  4. LOSARTAN POTASSIUM [Concomitant]
  5. SPIRANALOCTANE [Concomitant]

REACTIONS (4)
  - JOINT SWELLING [None]
  - SUPERFICIAL VEIN PROMINENCE [None]
  - PAIN IN EXTREMITY [None]
  - BACK PAIN [None]
